FAERS Safety Report 12984158 (Version 1)
Quarter: 2016Q4

REPORT INFORMATION
  Report Type: Spontaneous
  Country: US (occurrence: US)
  Receive Date: 20161129
  Receipt Date: 20161129
  Transmission Date: 20170207
  Serious: Yes (Hospitalization, Other)
  Sender: FDA-Public Use
  Company Number: US-MYLANLABS-2016M1051324

PATIENT

DRUGS (1)
  1. PREDNISONE. [Suspect]
     Active Substance: PREDNISONE
     Indication: PULMONARY SARCOIDOSIS
     Dosage: 40 MG DAILY
     Route: 048

REACTIONS (6)
  - Muscular weakness [Not Recovered/Not Resolved]
  - Encephalopathy [Recovered/Resolved]
  - Meningitis cryptococcal [Recovering/Resolving]
  - Diffuse vasculitis [Recovered/Resolved]
  - Ischaemic stroke [Recovered/Resolved]
  - Seizure [Recovered/Resolved]
